FAERS Safety Report 11037666 (Version 3)
Quarter: 2016Q1

REPORT INFORMATION
  Report Type: Other
  Country: None (occurrence: US)
  Receive Date: 20150416
  Receipt Date: 20160204
  Transmission Date: 20160525
  Serious: Yes (Hospitalization)
  Sender: FDA-Public Use
  Company Number: US-ACORDA-ACO_110630_2015

PATIENT
  Sex: Female

DRUGS (1)
  1. AMPYRA [Suspect]
     Active Substance: DALFAMPRIDINE
     Indication: PRODUCT USED FOR UNKNOWN INDICATION
     Dosage: 10 MG, Q 12 HRS
     Route: 048
     Dates: start: 20140829

REACTIONS (5)
  - Hypothermia [Unknown]
  - Sinusitis [Unknown]
  - Oropharyngeal pain [Unknown]
  - Urinary tract infection [Not Recovered/Not Resolved]
  - Pyrexia [Unknown]
